FAERS Safety Report 4446556-4 (Version None)
Quarter: 2004Q3

REPORT INFORMATION
  Report Type: 
  Country: None (occurrence: None)
  Receive Date: 20040908
  Receipt Date: 20040819
  Transmission Date: 20050211
  Serious: Yes (Death, Life-Threatening, Hospitalization)
  Sender: FDA-Public Use
  Company Number: 208312

PATIENT
  Age: 55 Year
  Sex: Female

DRUGS (3)
  1. HERCEPTIN [Suspect]
     Indication: BREAST CANCER
     Dosage: 6 MG/KG, Q3W, INTRAVENOUS
     Route: 042
     Dates: start: 20040501, end: 20040621
  2. FASLODEX [Suspect]
     Indication: BREAST CANCER
     Dosage: Q3W, INTRAMUSCULAR
     Route: 030
     Dates: start: 20040501, end: 20040621
  3. ZOMETA [Suspect]
     Indication: METASTASES TO BONE
     Dosage: 4 MG/KG, Q3W, INTRAMUSCULAR
     Route: 030
     Dates: start: 20040501, end: 20040621

REACTIONS (4)
  - COMA [None]
  - GASTRIC HAEMORRHAGE [None]
  - SEPSIS [None]
  - THROMBOCYTOPENIA [None]
